FAERS Safety Report 4619736-2 (Version None)
Quarter: 2005Q1

REPORT INFORMATION
  Report Type: 
  Country: None (occurrence: None)
  Receive Date: 20050325
  Receipt Date: 20050323
  Transmission Date: 20050727
  Serious: Yes (Hospitalization)
  Sender: FDA-Public Use
  Company Number: US-MERCK-0503USA04212

PATIENT
  Age: 90 Year
  Sex: Female

DRUGS (1)
  1. FOSAMAX [Suspect]
     Route: 048
     Dates: end: 20050301

REACTIONS (3)
  - BLOOD CALCIUM DECREASED [None]
  - HIP FRACTURE [None]
  - WRIST FRACTURE [None]
